FAERS Safety Report 12877737 (Version 1)
Quarter: 2016Q4

REPORT INFORMATION
  Report Type: Spontaneous
  Country: NO (occurrence: NO)
  Receive Date: 20161024
  Receipt Date: 20161024
  Transmission Date: 20170207
  Serious: Yes (Death)
  Sender: FDA-Public Use
  Company Number: NO-TEVA-703499ISR

PATIENT
  Age: 68 Year
  Sex: Male

DRUGS (2)
  1. PREDNISOLONE. [Suspect]
     Active Substance: PREDNISOLONE
     Indication: PSORIATIC ARTHROPATHY
     Dosage: LONG TERM
     Route: 065
  2. METHOTREXATE. [Suspect]
     Active Substance: METHOTREXATE
     Indication: PSORIATIC ARTHROPATHY
     Route: 065

REACTIONS (6)
  - Subcutaneous emphysema [Fatal]
  - Pneumomediastinum [Fatal]
  - Circulatory collapse [Fatal]
  - Mediastinal abscess [Fatal]
  - Respiratory failure [Fatal]
  - Oesophageal candidiasis [Fatal]
